FAERS Safety Report 9279568 (Version 1)
Quarter: 2013Q2

REPORT INFORMATION
  Report Type: Spontaneous
  Country: US (occurrence: US)
  Receive Date: 20130509
  Receipt Date: 20130509
  Transmission Date: 20140414
  Serious: No
  Sender: FDA-Public Use
  Company Number: US-B.I. PHARMACEUTICALS,INC./RIDGEFIELD-2013-BI-12631BP

PATIENT
  Age: 74 Year
  Sex: Female

DRUGS (8)
  1. SPIRIVA [Suspect]
     Indication: EMPHYSEMA
     Dosage: 18 MCG
     Route: 055
     Dates: start: 2011
  2. ZETIA [Concomitant]
     Route: 048
  3. HYDROCHLOROTHIAZIDE [Concomitant]
     Route: 048
  4. SYNTHROID [Concomitant]
     Route: 048
  5. KLOR-CON [Concomitant]
     Route: 048
  6. CYMBALTA [Concomitant]
     Route: 048
  7. HYDRALAZINE [Concomitant]
     Indication: HYPERTENSION
     Route: 048
  8. QUININE SULFATE [Concomitant]
     Indication: MUSCLE SPASMS
     Route: 048

REACTIONS (7)
  - Fall [Recovered/Resolved]
  - Headache [Recovered/Resolved]
  - Back pain [Recovered/Resolved]
  - Rhinorrhoea [Recovered/Resolved]
  - Sinus congestion [Recovered/Resolved]
  - Product quality issue [Recovered/Resolved]
  - Product quality issue [Recovered/Resolved]
